FAERS Safety Report 6448612-8 (Version None)
Quarter: 2009Q4

REPORT INFORMATION
  Report Type: 
  Country: None (occurrence: None)
  Receive Date: 20091120
  Receipt Date: 20091117
  Transmission Date: 20100525
  Serious: Yes (Hospitalization)
  Sender: FDA-Public Use
  Company Number: GB-NAPPMUNDI-GBR-2009-0005830

PATIENT
  Sex: Male
  Weight: 65 kg

DRUGS (7)
  1. MST CONTINUS TABLETS [Suspect]
     Indication: DRUG USE FOR UNKNOWN INDICATION
     Dosage: 30 MG, DAILY
     Route: 048
     Dates: start: 20090914, end: 20090925
  2. ZOLEDRONIC ACID [Suspect]
     Indication: DRUG USE FOR UNKNOWN INDICATION
     Dosage: 4 MG, DAILY
     Route: 042
     Dates: start: 20090922
  3. ZOLEDRONIC ACID [Suspect]
     Dosage: 4 MG, DAILY
     Route: 042
     Dates: start: 20090609
  4. CELECOXIB [Suspect]
     Indication: DRUG USE FOR UNKNOWN INDICATION
     Dosage: 400 MG, DAILY
     Route: 048
     Dates: start: 20090922
  5. CELECOXIB [Suspect]
     Dosage: 400 MG, DAILY
     Route: 048
     Dates: start: 20090609
  6. ZOLADEX [Concomitant]
     Dosage: 10.8 MG, DAILY
     Route: 058
     Dates: start: 20090407
  7. LOSARTAN POTASSIUM [Concomitant]
     Dosage: 50 MG, DAILY
     Route: 048

REACTIONS (6)
  - CONSTIPATION [None]
  - LOWER RESPIRATORY TRACT INFECTION [None]
  - MOBILITY DECREASED [None]
  - NAUSEA [None]
  - SYNCOPE [None]
  - URINARY TRACT INFECTION [None]
